FAERS Safety Report 13863052 (Version 1)
Quarter: 2017Q3

REPORT INFORMATION
  Report Type: Spontaneous
  Country: US (occurrence: US)
  Receive Date: 20170814
  Receipt Date: 20170814
  Transmission Date: 20171127
  Serious: Yes (Other)
  Sender: FDA-Public Use
  Company Number: US-AUROBINDO-AUR-APL-2017-38552

PATIENT
  Age: 51 Year
  Sex: Male

DRUGS (1)
  1. DIVALPROEX [Suspect]
     Active Substance: DIVALPROEX SODIUM
     Indication: MYOCLONUS
     Route: 065

REACTIONS (2)
  - Sedation complication [Unknown]
  - Tremor [Recovering/Resolving]
